FAERS Safety Report 18517998 (Version 1)
Quarter: 2020Q4

REPORT INFORMATION
  Report Type: Report from Study
  Country: US (occurrence: US)
  Receive Date: 20201118
  Receipt Date: 20201118
  Transmission Date: 20210114
  Serious: Yes (Other)
  Sender: FDA-Public Use
  Company Number: US-PFIZER INC-2020301180

PATIENT
  Age: 76 Year
  Sex: Female

DRUGS (2)
  1. IBRANCE [Suspect]
     Active Substance: PALBOCICLIB
     Indication: BREAST CANCER FEMALE
     Dosage: 125 MG, CYCLIC (DAILY, 21 DAYS THEN 7 DAYS OFF)
     Route: 048
     Dates: start: 20200727, end: 20200811
  2. IBRANCE [Suspect]
     Active Substance: PALBOCICLIB
     Dosage: 75 MG, CYCLIC (DAILY, 21 DAYS ON, THEN 7 DAYS OFF)
     Route: 048
     Dates: start: 202009

REACTIONS (14)
  - Night sweats [Unknown]
  - Hot flush [Unknown]
  - Respiratory tract congestion [Recovering/Resolving]
  - White blood cell count decreased [Recovering/Resolving]
  - Otolithiasis [Recovering/Resolving]
  - Myelosuppression [Recovered/Resolved]
  - Vertigo [Unknown]
  - Fall [Unknown]
  - Headache [Recovering/Resolving]
  - Platelet count decreased [Recovering/Resolving]
  - Fatigue [Recovering/Resolving]
  - Asthenia [Recovering/Resolving]
  - Condition aggravated [Recovering/Resolving]
  - Dysstasia [Unknown]

NARRATIVE: CASE EVENT DATE: 2020
